FAERS Safety Report 21850018 (Version 5)
Quarter: 2023Q1

REPORT INFORMATION
  Report Type: Spontaneous
  Country: IT (occurrence: IT)
  Receive Date: 20230111
  Receipt Date: 20230216
  Transmission Date: 20230417
  Serious: Yes (Other)
  Sender: FDA-Public Use
  Company Number: IT-AMGEN-ITASP2022215648

PATIENT
  Age: 32 Year
  Sex: Female

DRUGS (10)
  1. ADALIMUMAB [Suspect]
     Active Substance: ADALIMUMAB
     Indication: Iridocyclitis
     Dosage: 40 MG, Q2W
     Route: 058
     Dates: start: 202007, end: 2021
  2. SECUKINUMAB [Suspect]
     Active Substance: SECUKINUMAB
     Indication: Iridocyclitis
     Dosage: 150 MG, QMO
     Route: 065
  3. CERTOLIZUMAB [Suspect]
     Active Substance: CERTOLIZUMAB
     Indication: Product used for unknown indication
     Dosage: UNK
     Route: 065
  4. PREDNISONE [Concomitant]
     Active Substance: PREDNISONE
     Indication: Iridocyclitis
     Dosage: 5 MG EVERY 1.75 DAY, FOR FOUR DAYS A WEEK
     Route: 065
     Dates: start: 202007
  5. PREDNISONE [Concomitant]
     Active Substance: PREDNISONE
     Dosage: 6.25 MG, QD PROGRESSIVE DECREASE OF THE DOSAGE
     Route: 065
  6. PREDNISONE [Concomitant]
     Active Substance: PREDNISONE
     Dosage: 12.5 MG, QD
     Route: 065
     Dates: start: 202007
  7. AZATHIOPRINE [Concomitant]
     Active Substance: AZATHIOPRINE
     Indication: Iridocyclitis
     Dosage: UNK
     Route: 065
  8. HYDROXYCHLOROQUINE [Concomitant]
     Active Substance: HYDROXYCHLOROQUINE
     Indication: Iridocyclitis
     Dosage: UNK
     Route: 065
  9. CYCLOSPORINE [Concomitant]
     Active Substance: CYCLOSPORINE
     Indication: Iridocyclitis
     Dosage: UNK
     Route: 065
  10. METHOTREXATE [Concomitant]
     Active Substance: METHOTREXATE
     Indication: Iridocyclitis
     Dosage: UNK
     Route: 065

REACTIONS (7)
  - Peripheral spondyloarthritis [Recovering/Resolving]
  - Axial spondyloarthritis [Recovering/Resolving]
  - Adnexa uteri cyst [Unknown]
  - Ovarian cyst [Recovered/Resolved]
  - Mental disorder [Recovered/Resolved]
  - Drug ineffective [Unknown]
  - Off label use [Unknown]

NARRATIVE: CASE EVENT DATE: 20200701
